FAERS Safety Report 7658165-4 (Version None)
Quarter: 2011Q3

REPORT INFORMATION
  Report Type: 
  Country: None (occurrence: None)
  Receive Date: 20110805
  Receipt Date: 20110727
  Transmission Date: 20111222
  Serious: Yes (Hospitalization)
  Sender: FDA-Public Use
  Company Number: JP-BAYER-2011-049861

PATIENT
  Age: 72 Year
  Sex: Male

DRUGS (2)
  1. NEXAVAR [Suspect]
     Dosage: 200 MG, TID
     Route: 048
     Dates: start: 20110609
  2. NEXAVAR [Suspect]
     Indication: HEPATIC NEOPLASM MALIGNANT
     Dosage: 200 MG, BID
     Route: 048
     Dates: start: 20110502, end: 20110607

REACTIONS (6)
  - BLOOD ALBUMIN DECREASED [None]
  - JAUNDICE [None]
  - PROTHROMBIN LEVEL DECREASED [None]
  - BLOOD BILIRUBIN INCREASED [None]
  - AMMONIA INCREASED [None]
  - PYREXIA [None]
